FAERS Safety Report 9783251 (Version 1)
Quarter: 2013Q4

REPORT INFORMATION
  Report Type: Spontaneous
  Country: US (occurrence: US)
  Receive Date: 20131226
  Receipt Date: 20131226
  Transmission Date: 20140711
  Serious: Yes (Other)
  Sender: FDA-Public Use
  Company Number: US-PFIZER INC-2013369231

PATIENT
  Age: 18 Month
  Sex: Male

DRUGS (2)
  1. CHILDRENS ADVIL [Suspect]
     Indication: PAIN
     Dosage: UNK [ABOUT 2ML (ONE FOURTH OF TEASPOON) EVERY 6-8 HOURS]
     Route: 048
  2. CHILDREN^S MOTRIN [Suspect]
     Indication: PAIN
     Dosage: UNK

REACTIONS (8)
  - Shock [Unknown]
  - Rash [Unknown]
  - Erythema [Unknown]
  - Diarrhoea [Unknown]
  - Urticaria [Unknown]
  - Vomiting [Unknown]
  - Cough [Unknown]
  - Rhinorrhoea [Unknown]
